FAERS Safety Report 17673721 (Version 2)
Quarter: 2020Q2

REPORT INFORMATION
  Report Type: Spontaneous
  Country: US (occurrence: US)
  Receive Date: 20200416
  Receipt Date: 20200429
  Transmission Date: 20200714
  Serious: Yes (Hospitalization)
  Sender: FDA-Public Use
  Company Number: US-TEVA-2020-US-1222382

PATIENT
  Age: 28 Year
  Sex: Male

DRUGS (4)
  1. CARBOPLATIN. [Suspect]
     Active Substance: CARBOPLATIN
     Indication: GERM CELL CANCER METASTATIC
     Route: 065
  2. ETOPOSIDE. [Concomitant]
     Active Substance: ETOPOSIDE
     Indication: TESTIS CANCER
  3. CARBOPLATIN. [Suspect]
     Active Substance: CARBOPLATIN
     Indication: TESTIS CANCER
  4. ETOPOSIDE. [Concomitant]
     Active Substance: ETOPOSIDE
     Indication: GERM CELL CANCER METASTATIC
     Route: 065

REACTIONS (9)
  - Acute kidney injury [Recovering/Resolving]
  - Hypokalaemia [Unknown]
  - Renal tubular dysfunction [Recovering/Resolving]
  - Generalised oedema [Unknown]
  - Oedema [Unknown]
  - Hypernatraemia [Unknown]
  - Oliguria [Recovering/Resolving]
  - Fanconi syndrome acquired [Recovering/Resolving]
  - Hypotension [Unknown]
